FAERS Safety Report 9442903 (Version 3)
Quarter: 2013Q3

REPORT INFORMATION
  Report Type: Spontaneous
  Country: DE (occurrence: DE)
  Receive Date: 20130806
  Receipt Date: 20130902
  Transmission Date: 20140515
  Serious: Yes (Hospitalization, Other)
  Sender: FDA-Public Use
  Company Number: DE-JNJFOC-20130715548

PATIENT
  Age: 3 Day
  Sex: Male
  Weight: 3.72 kg

DRUGS (4)
  1. FENTANYL [Suspect]
     Indication: PAIN
     Route: 064
     Dates: start: 20080212, end: 20081110
  2. NOVALGIN [Concomitant]
     Indication: PAIN
     Route: 064
  3. AMITRIPTYLIN [Concomitant]
     Indication: PAIN
     Route: 064
  4. GABAPENTIN [Concomitant]
     Indication: PAIN
     Route: 064

REACTIONS (6)
  - Drug withdrawal syndrome neonatal [Recovered/Resolved]
  - Convulsion neonatal [Recovered/Resolved]
  - Acute respiratory failure [Recovered/Resolved]
  - Hypocalcaemia [Recovered/Resolved]
  - Metabolic acidosis [Recovered/Resolved]
  - Foetal exposure during pregnancy [Recovered/Resolved]
